FAERS Safety Report 9993303 (Version 1)
Quarter: 2014Q1

REPORT INFORMATION
  Report Type: Spontaneous
  Country: US (occurrence: US)
  Receive Date: 20140310
  Receipt Date: 20140310
  Transmission Date: 20141002
  Serious: No
  Sender: FDA-Public Use
  Company Number: US-BAUSCH-BL-2013-001806

PATIENT
  Sex: Male
  Weight: 97.61 kg

DRUGS (7)
  1. DESMOPRESSIN ACETATE NASAL SOLUTION 0.01% [Suspect]
     Indication: DIABETES INSIPIDUS
     Dosage: 1 SPRAY IN ONE NOSTRIL, ONCE DAILY
     Route: 045
     Dates: start: 20130318
  2. RANOLAZINE [Concomitant]
  3. ROSUVASTATIN CALCIUM [Concomitant]
  4. HYDROCHLOROTHIAZIDE [Concomitant]
  5. LEVOTHYROXINE [Concomitant]
  6. CLOPIDOGREL BISULFATE [Concomitant]
  7. ERGOCALCIFEROL/ASCORBIC ACID/PYRIDOXINE HYDROCHLORIDE/THIAMINE HYDROCHLORIDE/RETINOL/RIBOFLAVIN/NICO [Concomitant]

REACTIONS (1)
  - Head discomfort [Not Recovered/Not Resolved]
